FAERS Safety Report 5260820-0 (Version None)
Quarter: 2007Q1

REPORT INFORMATION
  Report Type: 
  Country: None (occurrence: None)
  Receive Date: 20070306
  Receipt Date: 20070223
  Transmission Date: 20070707
  Serious: Yes (Death)
  Sender: FDA-Public Use
  Company Number: T200700251

PATIENT
  Age: 83 Year
  Sex: Male

DRUGS (1)
  1. OPTIRAY 320 [Suspect]
     Indication: COMPUTERISED TOMOGRAM THORAX
     Dosage: 150 ML, SINGLE, INTRAVENOUS
     Route: 042
     Dates: start: 20070222, end: 20070222

REACTIONS (3)
  - DYSPNOEA [None]
  - LOSS OF CONSCIOUSNESS [None]
  - VOMITING [None]
